FAERS Safety Report 6126856-2 (Version None)
Quarter: 2009Q1

REPORT INFORMATION
  Report Type: 
  Country: None (occurrence: None)
  Receive Date: 20090320
  Receipt Date: 20090313
  Transmission Date: 20090719
  Serious: Yes (Hospitalization)
  Sender: FDA-Public Use
  Company Number: US-GENENTECH-279202

PATIENT
  Sex: Male

DRUGS (3)
  1. BEVACIZUMAB [Suspect]
     Indication: NON-SMALL CELL LUNG CANCER
     Dosage: 10 ML/KG, DAYS 1+15
     Dates: start: 20090306
  2. PEMETREXED [Concomitant]
     Indication: NON-SMALL CELL LUNG CANCER
     Dosage: 500 MG/M2, Q28D
  3. GEMCITABINE [Concomitant]
     Indication: NON-SMALL CELL LUNG CANCER
     Dosage: 1500 MG/M2, Q28D

REACTIONS (2)
  - ASTHENIA [None]
  - PYREXIA [None]
